FAERS Safety Report 19632775 (Version 1)
Quarter: 2021Q3

REPORT INFORMATION
  Report Type: Spontaneous
  Country: US (occurrence: US)
  Receive Date: 20210730
  Receipt Date: 20210730
  Transmission Date: 20211014
  Serious: Yes (Other)
  Sender: FDA-Public Use
  Company Number: US-NOVEN PHARMACEUTICALS, INC.-2020US006987

PATIENT
  Age: 54 Year
  Sex: Female
  Weight: 63.49 kg

DRUGS (4)
  1. COMBIPATCH [Suspect]
     Active Substance: ESTRADIOL\NORETHINDRONE ACETATE
     Indication: MENOPAUSAL SYMPTOMS
     Dosage: 0.05/0.14MG/DAY, EVERY MONDAY AND THURSDAY
     Route: 062
  2. CENTRUM [Concomitant]
     Active Substance: VITAMINS
     Indication: VITAMIN SUPPLEMENTATION
     Dosage: UNK, DAILY
     Route: 065
  3. COMBIPATCH [Suspect]
     Active Substance: ESTRADIOL\NORETHINDRONE ACETATE
     Dosage: 0.05/0.14 MG, 1 PATCH EVERY 4 DAYS
     Route: 062
     Dates: start: 2019
  4. COMBIPATCH [Suspect]
     Active Substance: ESTRADIOL\NORETHINDRONE ACETATE
     Dosage: 0.05/0.25 MG, UNKNOWN
     Route: 062
     Dates: start: 2020, end: 2020

REACTIONS (6)
  - Product dose omission issue [Recovered/Resolved]
  - Adhesive tape use [Unknown]
  - Intermenstrual bleeding [Not Recovered/Not Resolved]
  - Intentional product use issue [Recovered/Resolved]
  - Postmenopausal haemorrhage [Not Recovered/Not Resolved]
  - Device adhesion issue [Not Recovered/Not Resolved]

NARRATIVE: CASE EVENT DATE: 202102
